FAERS Safety Report 8417265-1 (Version None)
Quarter: 2012Q2

REPORT INFORMATION
  Report Type: 
  Country: None (occurrence: None)
  Receive Date: 20120606
  Receipt Date: 20120524
  Transmission Date: 20120825
  Serious: No
  Sender: FDA-Public Use
  Company Number: US-ASTRAZENECA-2012SE33635

PATIENT
  Age: 56 Year
  Sex: Male

DRUGS (8)
  1. AMBIEN [Concomitant]
  2. OXICODONE HCI [Concomitant]
  3. NEURONTIN [Concomitant]
  4. OXYCONTIN [Concomitant]
  5. LEVOTHYROXINE SODIUM [Concomitant]
  6. LISINOPRIL [Concomitant]
  7. CAPRELSA [Suspect]
     Indication: THYROID CANCER
     Route: 048
  8. CYMBALTA [Concomitant]

REACTIONS (4)
  - FATIGUE [None]
  - MUSCLE TWITCHING [None]
  - POOR QUALITY SLEEP [None]
  - RASH [None]
